FAERS Safety Report 4554057-8 (Version None)
Quarter: 2005Q1

REPORT INFORMATION
  Report Type: 
  Country: None (occurrence: None)
  Receive Date: 20050118
  Receipt Date: 20041206
  Transmission Date: 20050727
  Serious: Yes (Life-Threatening, Hospitalization, Disabling)
  Sender: FDA-Public Use
  Company Number: US-MERCK-0412USA00678

PATIENT
  Age: 52 Year
  Sex: Male

DRUGS (3)
  1. VIOXX [Suspect]
     Indication: BACK PAIN
     Route: 048
     Dates: start: 20000101, end: 20040101
  2. NEURONTIN [Concomitant]
     Route: 048
     Dates: start: 20040216
  3. WELLBUTRIN [Concomitant]
     Route: 065

REACTIONS (13)
  - ALCOHOL POISONING [None]
  - BACK INJURY [None]
  - BACK PAIN [None]
  - BELLIGERENCE [None]
  - CONVULSION [None]
  - DRUG INTERACTION [None]
  - LIMB INJURY [None]
  - MUSCLE SPASMS [None]
  - MUSCULOSKELETAL DISCOMFORT [None]
  - NECK INJURY [None]
  - NECK PAIN [None]
  - OVERDOSE [None]
  - ROAD TRAFFIC ACCIDENT [None]
